FAERS Safety Report 7792033-2 (Version None)
Quarter: 2011Q3

REPORT INFORMATION
  Report Type: 
  Country: None (occurrence: None)
  Receive Date: 20110929
  Receipt Date: 20110922
  Transmission Date: 20111222
  Serious: Yes (Hospitalization)
  Sender: FDA-Public Use
  Company Number: DKLU1071894

PATIENT
  Age: 8 Month
  Sex: Female

DRUGS (5)
  1. CLONAZEPAM [Concomitant]
  2. TOPIRAMATE [Concomitant]
  3. SABRIL [Suspect]
     Indication: INFANTILE SPASMS
     Dosage: 500 MG MILLIGRAM(S), 2 IN 1 D, ORAL
     Route: 048
     Dates: start: 20110624
  4. DEPAKOTE [Concomitant]
  5. KEPPRA [Concomitant]

REACTIONS (2)
  - PNEUMONIA ASPIRATION [None]
  - HYPERSOMNIA [None]
